FAERS Safety Report 4545924-X (Version None)
Quarter: 2005Q1

REPORT INFORMATION
  Report Type: 
  Country: None (occurrence: None)
  Receive Date: 20050103
  Receipt Date: 20041221
  Transmission Date: 20050727
  Serious: Yes (Other)
  Sender: FDA-Public Use
  Company Number: 2004117371

PATIENT
  Age: 54 Year
  Sex: Male
  Weight: 88.4514 kg

DRUGS (4)
  1. NEURONTIN [Suspect]
     Indication: PAIN IN EXTREMITY
     Dosage: ORAL
     Route: 048
  2. OXYCODONE HCL [Concomitant]
  3. OXYCODONE (OXYCODONE) [Concomitant]
  4. AMITRIPTYLINE (AMITRIPTYLINE) [Concomitant]

REACTIONS (10)
  - ERYTHEMA [None]
  - FIBROMYALGIA [None]
  - HERPES ZOSTER [None]
  - HOT FLUSH [None]
  - HYPERHIDROSIS [None]
  - MEDICATION ERROR [None]
  - NAUSEA [None]
  - SLEEP DISORDER DUE TO GENERAL MEDICAL CONDITION, INSOMNIA TYPE [None]
  - SPINAL FUSION SURGERY [None]
  - TREATMENT NONCOMPLIANCE [None]
